FAERS Safety Report 7821824-4 (Version None)
Quarter: 2011Q4

REPORT INFORMATION
  Report Type: 
  Country: None (occurrence: None)
  Receive Date: 20111018
  Receipt Date: 20110512
  Transmission Date: 20120403
  Serious: No
  Sender: FDA-Public Use
  Company Number: US-ASTRAZENECA-2011SE28536

PATIENT
  Age: 36 Year
  Sex: Female

DRUGS (3)
  1. SYMBICORT [Suspect]
     Dosage: 160/4.5 MCG TWO PUFFS TWICE A DAY
     Route: 055
  2. SYMBICORT [Suspect]
     Dosage: 160/4.5 MCG TWO PUFFS TWICE A DAY
     Route: 055
  3. ADVAIR DISKUS 100/50 [Suspect]
     Route: 065

REACTIONS (2)
  - ASTHMA [None]
  - WEIGHT INCREASED [None]
